FAERS Safety Report 8102726 (Version 3)
Quarter: 2014Q2

REPORT INFORMATION
  Report Type: Spontaneous
  Country: US (occurrence: US)
  Receive Date: 20110823
  Receipt Date: 20140423
  Transmission Date: 20141212
  Serious: Yes (Other)
  Sender: FDA-Public Use
  Company Number: US-ASTRAZENECA-2011SE49157

PATIENT
  Age: 60 Year
  Sex: Female
  Weight: 67.1 kg

DRUGS (4)
  1. NEXIUM [Suspect]
     Indication: GASTROOESOPHAGEAL REFLUX DISEASE
     Route: 048
  2. NEXIUM [Suspect]
     Indication: GASTROOESOPHAGEAL REFLUX DISEASE
     Route: 048
     Dates: start: 2010, end: 20140328
  3. OMEPRAZOLE [Suspect]
     Route: 048
  4. VICODIN [Concomitant]
     Indication: BACK PAIN
     Dosage: 10 MG/325 MG, TID
     Route: 048

REACTIONS (5)
  - Precancerous cells present [Unknown]
  - Gastrooesophageal reflux disease [Unknown]
  - Dysphagia [Unknown]
  - Drug dose omission [Unknown]
  - Drug ineffective [Unknown]
